FAERS Safety Report 13001627 (Version 3)
Quarter: 2017Q2

REPORT INFORMATION
  Report Type: Report from Study
  Country: IT (occurrence: IT)
  Receive Date: 20161206
  Receipt Date: 20170426
  Transmission Date: 20170830
  Serious: Yes (Hospitalization)
  Sender: FDA-Public Use
  Company Number: IT-009507513-1612ITA001986

PATIENT
  Age: 22 Year
  Sex: Male
  Weight: 75 kg

DRUGS (3)
  1. PERPHENAZINE. [Suspect]
     Active Substance: PERPHENAZINE
     Indication: DRUG USE DISORDER
     Dosage: 15 DOSE UNITS TOTAL
     Route: 048
     Dates: start: 20151112, end: 20151112
  2. TALOFEN [Suspect]
     Active Substance: PROMAZINE HYDROCHLORIDE
     Indication: DRUG USE DISORDER
     Dosage: 15 ML, QD, STRENGTH: 4G/100ML
     Route: 048
     Dates: start: 20151113, end: 20151113
  3. RIVOTRIL [Suspect]
     Active Substance: CLONAZEPAM
     Indication: DRUG USE DISORDER
     Dosage: 8 DOSE UNITS TOTAL
     Route: 048
     Dates: start: 20151112, end: 20151112

REACTIONS (4)
  - Myalgia [Recovering/Resolving]
  - Somnolence [Recovering/Resolving]
  - Substance use disorder [Unknown]
  - Drug use disorder [Recovering/Resolving]

NARRATIVE: CASE EVENT DATE: 20151113
